FAERS Safety Report 9129197 (Version 1)
Quarter: 2013Q1

REPORT INFORMATION
  Report Type: Spontaneous
  Country: US (occurrence: US)
  Receive Date: 20130228
  Receipt Date: 20130228
  Transmission Date: 20140127
  Serious: No
  Sender: FDA-Public Use
  Company Number: US-ABBOTT-13P-163-1045788-00

PATIENT
  Sex: Male
  Weight: 72.64 kg

DRUGS (1)
  1. ANDROGEL 1.62% [Suspect]
     Indication: BLOOD TESTOSTERONE DECREASED
     Dosage: ONE PUMP EACH SHOULDER DAILY
     Dates: start: 201208, end: 201211

REACTIONS (2)
  - Testicular atrophy [Not Recovered/Not Resolved]
  - Blood testosterone decreased [Unknown]
